FAERS Safety Report 4331101-4 (Version None)
Quarter: 2004Q1

REPORT INFORMATION
  Report Type: 
  Country: None (occurrence: None)
  Receive Date: 20040331
  Receipt Date: 20040318
  Transmission Date: 20041129
  Serious: Yes (Hospitalization, Other)
  Sender: FDA-Public Use
  Company Number: 2004000618

PATIENT
  Age: 74 Year
  Sex: Female

DRUGS (20)
  1. TIKOSYN [Suspect]
     Indication: ATRIAL FIBRILLATION
     Dosage: 250 MCG (BID), ORAL
     Route: 048
     Dates: start: 20031101
  2. ALENDRONATE SODIUM [Concomitant]
  3. QUINAPRIL HCL [Concomitant]
  4. CARVEDILOL [Concomitant]
  5. DIGOXIN [Concomitant]
  6. WARFARIN SODIUM [Concomitant]
  7. FUROSEMIDE [Concomitant]
  8. PREDNISONE [Concomitant]
  9. CHOLESTYRAMINE [Concomitant]
  10. AMLODIPINE BESYLATE [Concomitant]
  11. ESOMEPRAZOLE (ESOMEPRAZOLE) [Concomitant]
  12. DOCUSATE SODIUM (DOCUSATE SODIUM) [Concomitant]
  13. CALCIUM/ MINERALS/VITAMIN D (ERGOCALCIFEROL, CALCIUM, MINERALS NOS) [Concomitant]
  14. CHLORPROPAMIDE [Concomitant]
  15. BRIMONIDINE TARTRATE (BRIMONIDINE TARTRATE) [Concomitant]
  16. LOSARTAN POTASSIUM (LOSARTAN POTASSIUM) [Concomitant]
  17. CLOPIDOGREL BISULFATE [Concomitant]
  18. GARLIC (GARLIC) [Concomitant]
  19. FAMOTIDINE [Concomitant]
  20. ACETYLSALICYLIC ACID SRT [Concomitant]

REACTIONS (7)
  - ALOPECIA [None]
  - CORONARY ARTERY OCCLUSION [None]
  - DYSPNOEA [None]
  - ELECTROCARDIOGRAM ABNORMAL [None]
  - PAIN [None]
  - PYREXIA [None]
  - WEIGHT INCREASED [None]
